FAERS Safety Report 10722793 (Version 1)
Quarter: 2015Q1

REPORT INFORMATION
  Report Type: Spontaneous
  Country: US (occurrence: US)
  Receive Date: 20150120
  Receipt Date: 20150120
  Transmission Date: 20150721
  Serious: No
  Sender: FDA-Public Use
  Company Number: US-TEVA-469743USA

PATIENT
  Sex: Female

DRUGS (1)
  1. CLEMASTINE [Suspect]
     Active Substance: CLEMASTINE
     Indication: HYPERSENSITIVITY

REACTIONS (4)
  - Neuralgia [Not Recovered/Not Resolved]
  - Inflammation [Not Recovered/Not Resolved]
  - Rheumatic disorder [Unknown]
  - Nervous system disorder [Unknown]
